FAERS Safety Report 24437150 (Version 1)
Quarter: 2024Q4

REPORT INFORMATION
  Report Type: Spontaneous
  Country: US (occurrence: None)
  Receive Date: 20241011
  Receipt Date: 20241011
  Transmission Date: 20250114
  Serious: Yes (Other)
  Sender: Public
  Company Number: None

PATIENT
  Age: 63 Year
  Sex: Female

DRUGS (10)
  1. CABOMETYX [Suspect]
     Active Substance: CABOZANTINIB S-MALATE
     Dosage: FREQUENCY : DAILY;?
     Route: 048
  2. DOCUSATE [Concomitant]
  3. POLYETHYLENE GLYCOL [Concomitant]
     Active Substance: POLYETHYLENE GLYCOL
  4. ONDANSETRON [Concomitant]
  5. ACETAMINOPHEN [Concomitant]
  6. SODIUM CHLORIDE [Concomitant]
     Active Substance: SODIUM CHLORIDE
  7. LORATADINE [Concomitant]
  8. PANTOPRAZOLE [Concomitant]
  9. Tumeric [Concomitant]
  10. MAGNESIUM SULFATE [Concomitant]

REACTIONS (2)
  - Pyrexia [None]
  - Viral infection [None]

NARRATIVE: CASE EVENT DATE: 20241011
